FAERS Safety Report 8562451 (Version 3)
Quarter: 2012Q4

REPORT INFORMATION
  Report Type: 
  Country: US (occurrence: US)
  Receive Date: 20120515
  Receipt Date: 20121115
  Transmission Date: 20130627
  Serious: Yes (Hospitalization)
  Sender: FDA-Public Use
  Company Number: US-BAYER-2012-046805

PATIENT
  Age: 21 Year
  Sex: Female
  Weight: 58.96 kg

DRUGS (12)
  1. YASMIN [Suspect]
     Indication: CONTRACEPTION
     Dosage: UNK
     Dates: start: 20061222, end: 20080110
  2. YASMIN [Suspect]
     Indication: CONTRACEPTION
     Dosage: UNK
     Dates: start: 20090210, end: 20090414
  3. YAZ [Suspect]
     Indication: CONTRACEPTION
     Dosage: UNK
     Dates: start: 20080319, end: 20090116
  4. OCELLA [Suspect]
     Indication: CONTRACEPTION
     Dosage: UNK
     Dates: start: 20090117, end: 20090209
  5. AMOXICILLIN [Concomitant]
     Dosage: 250 mg, UNK
     Route: 048
     Dates: start: 20090216
  6. AZITHROMYCIN [Concomitant]
     Dosage: 250 mg, UNK
     Route: 048
     Dates: start: 20090313
  7. ALEVE [Concomitant]
     Dosage: UNK
     Dates: start: 2006, end: 20090414
  8. LYRICA [Concomitant]
     Dosage: 75 mg, UNK
     Route: 048
     Dates: start: 20090413
  9. VESICARE [Concomitant]
     Dosage: 5 mg, UNK
     Route: 048
     Dates: start: 20090413
  10. CELLCEPT [Concomitant]
     Indication: AUTOIMMUNE RETINOPATHY
     Dosage: 1000 mg, UNK
     Route: 048
     Dates: start: 20080829, end: 20090417
  11. FLEXERIL [Concomitant]
     Dosage: 10 mg, UNK
     Route: 048
     Dates: start: 20081004, end: 20090826
  12. CEFDINIR [Concomitant]
     Dosage: UNK
     Dates: start: 20090216, end: 20090226

REACTIONS (14)
  - Pulmonary embolism [None]
  - Anxiety [None]
  - Injury [None]
  - Pain [None]
  - Emotional distress [None]
  - General physical health deterioration [None]
  - Dizziness [None]
  - Loss of consciousness [None]
  - Heart rate increased [None]
  - Fatigue [None]
  - Chest discomfort [None]
  - Psychological trauma [None]
  - Hypoaesthesia [None]
  - Sensation of heaviness [None]
